FAERS Safety Report 25889930 (Version 1)
Quarter: 2025Q4

REPORT INFORMATION
  Report Type: Spontaneous
  Country: US (occurrence: None)
  Receive Date: 20251006
  Receipt Date: 20251006
  Transmission Date: 20260117
  Serious: Yes (Death)
  Sender: FDA-CTU
  Company Number: None

PATIENT
  Age: 82 Year
  Sex: Female

DRUGS (11)
  1. LENALIDOMIDE [Suspect]
     Active Substance: LENALIDOMIDE
     Indication: Plasma cell myeloma
     Dosage: 10MG  DAILY FOR 21 DAYS EVERY 28 DAYS DAILY ORAL ?
     Route: 048
     Dates: start: 20250904
  2. ACYCLOVIR 200MG CAPSULES [Concomitant]
  3. DARZALEX 100MG/5ML INJ. 1 VIAL [Concomitant]
  4. DEXAMETHA.SONE PHO _4MGIML INJ. 5ML [Concomitant]
  5. ASPIRIN 81 MG EC LOW DOSE TABLETS [Concomitant]
  6. FAMOTIDINE 1 0MG TAB LETS [Concomitant]
  7. LATANOPROST0.005% OPHTH SOLN 2.5ML [Concomitant]
  8. OPTIMAL D3 M 14.000U CAPSULES [Concomitant]
  9. PANTOPRAZOLE 20MG TABLETS [Concomitant]
  10. SYNTHROID 0. 05MG (50MCG)TABLETS [Concomitant]
  11. TIMOLOL 0.5% GF OPTH SOLN 5ML [Concomitant]

REACTIONS (2)
  - Cerebral haematoma [None]
  - Respiratory failure [None]

NARRATIVE: CASE EVENT DATE: 20251005
